FAERS Safety Report 10997207 (Version 1)
Quarter: 2015Q2

REPORT INFORMATION
  Report Type: Spontaneous
  Country: US (occurrence: US)
  Receive Date: 20150408
  Receipt Date: 20150408
  Transmission Date: 20150821
  Serious: No
  Sender: FDA-Public Use
  Company Number: US-BANPHARM-20142411

PATIENT
  Age: 78 Year
  Sex: Female
  Weight: 94.8 kg

DRUGS (4)
  1. NIOSEN OTC [Concomitant]
  2. ATENOLOL. [Concomitant]
     Active Substance: ATENOLOL
  3. ALEVE [Suspect]
     Active Substance: NAPROXEN SODIUM
     Indication: BACK PAIN
     Dosage: 2 DF, PRN,
     Route: 048
  4. ZETIA [Concomitant]
     Active Substance: EZETIMIBE

REACTIONS (3)
  - Wrong technique in drug usage process [Unknown]
  - Peripheral swelling [Recovered/Resolved]
  - Erythema [Recovered/Resolved]

NARRATIVE: CASE EVENT DATE: 201402
